FAERS Safety Report 4773789-X (Version None)
Quarter: 2005Q3

REPORT INFORMATION
  Report Type: 
  Country: None (occurrence: None)
  Receive Date: 20050919
  Receipt Date: 20050901
  Transmission Date: 20060218
  Serious: Yes (Death, Other)
  Sender: FDA-Public Use
  Company Number: CAN-2005-0000292

PATIENT
  Age: 23 Year
  Sex: Female

DRUGS (4)
  1. OXYCONTIN [Suspect]
     Dosage: UNK
     Route: 065
     Dates: start: 20040101
  2. DILAUDID [Suspect]
     Dosage: UNK
     Route: 065
     Dates: start: 20040101
  3. PERCOCET [Suspect]
     Dosage: UNK
     Route: 065
     Dates: start: 20040101
  4. COCAINE (COCAINE) [Suspect]
     Dosage: UNK
     Route: 065
     Dates: start: 20040101

REACTIONS (8)
  - BEREAVEMENT REACTION [None]
  - DEPRESSION [None]
  - DRUG ABUSER [None]
  - IMPRISONMENT [None]
  - LOSS OF EMPLOYMENT [None]
  - MYOCARDIAL INFARCTION [None]
  - POLYSUBSTANCE ABUSE [None]
  - THEFT [None]
